FAERS Safety Report 6102149-4 (Version None)
Quarter: 2009Q1

REPORT INFORMATION
  Report Type: 
  Country: None (occurrence: None)
  Receive Date: 20090304
  Receipt Date: 20090218
  Transmission Date: 20090719
  Serious: Yes (Hospitalization)
  Sender: FDA-Public Use
  Company Number: AT-MERCK-0903AUT00003

PATIENT
  Age: 79 Year
  Sex: Female
  Weight: 67 kg

DRUGS (7)
  1. HYZAAR [Suspect]
     Indication: HYPERTENSION
     Route: 048
  2. LOSARTAN POTASSIUM [Concomitant]
     Indication: HYPERTENSION
     Route: 048
  3. CARBAMAZEPINE [Suspect]
     Route: 048
  4. NIFEDIPINE [Concomitant]
     Route: 048
  5. METOPROLOL TARTRATE [Concomitant]
     Route: 048
  6. DIAZEPAM [Concomitant]
     Route: 054
  7. SIMVASTATIN [Concomitant]
     Route: 048

REACTIONS (3)
  - GAIT DISTURBANCE [None]
  - HYPONATRAEMIA [None]
  - VERTIGO [None]
